FAERS Safety Report 15281830 (Version 1)
Quarter: 2018Q3

REPORT INFORMATION
  Report Type: Spontaneous
  Country: US (occurrence: US)
  Receive Date: 20180815
  Receipt Date: 20180815
  Transmission Date: 20181010
  Serious: Yes (Other)
  Sender: FDA-Public Use
  Company Number: US-PFIZER INC-2013257904

PATIENT
  Age: 62 Year
  Sex: Male
  Weight: 124 kg

DRUGS (26)
  1. AMBIEN [Concomitant]
     Active Substance: ZOLPIDEM TARTRATE
     Dosage: UNK
  2. LOTEMAX [Concomitant]
     Active Substance: LOTEPREDNOL ETABONATE
     Dosage: UNK
  3. DEMEROL [Concomitant]
     Active Substance: MEPERIDINE HYDROCHLORIDE
     Dosage: UNK
  4. PROBIOTIC [Concomitant]
     Active Substance: PROBIOTICS NOS
     Dosage: UNK
  5. PREDNISONE. [Concomitant]
     Active Substance: PREDNISONE
     Dosage: 5 ? 40MG BID, AS NEEDED
  6. VANCOMYCIN [Concomitant]
     Active Substance: VANCOMYCIN
     Indication: CLOSTRIDIUM DIFFICILE INFECTION
     Dosage: 125 MG, QD
  7. HYDROCODONE [Concomitant]
     Active Substance: HYDROCODONE
     Dosage: UNK
  8. METHOTREXATE SODIUM. [Suspect]
     Active Substance: METHOTREXATE SODIUM
     Dosage: UNK
  9. VANCOMYCIN [Concomitant]
     Active Substance: VANCOMYCIN
     Indication: DIARRHOEA
  10. DICLOFENAC [Concomitant]
     Active Substance: DICLOFENAC
     Dosage: 50 MG, QD
  11. DPT [Concomitant]
     Active Substance: DIPHTHERIA AND TETANUS TOXOIDS AND PERTUSSIS VACCINE
     Dosage: UNK
     Dates: start: 201704
  12. CIPRO [Concomitant]
     Active Substance: CIPROFLOXACIN HYDROCHLORIDE
     Dosage: UNK
  13. MISOPROSTOL. [Concomitant]
     Active Substance: MISOPROSTOL
     Dosage: 200 MUG, UNK
  14. ZOSTAVAX [Concomitant]
     Active Substance: VARICELLA-ZOSTER VIRUS STRAIN OKA/MERCK LIVE ANTIGEN
     Dosage: UNK
     Dates: start: 201704
  15. ARTHROTEC [Concomitant]
     Active Substance: DICLOFENAC SODIUM\MISOPROSTOL
     Dosage: UNK (75)
  16. CEFZIL [Concomitant]
     Active Substance: CEFPROZIL
     Dosage: UNK
  17. ACYCLOVIR. [Concomitant]
     Active Substance: ACYCLOVIR
     Indication: ORAL HERPES
     Dosage: 2000 MG, BID
  18. MUPIROCIN. [Concomitant]
     Active Substance: MUPIROCIN
     Dosage: UNK
  19. DIAZEPAN [Concomitant]
     Active Substance: DIAZEPAM
     Dosage: UNK
  20. SIMBRINZA [Concomitant]
     Active Substance: BRIMONIDINE TARTRATE\BRINZOLAMIDE
     Dosage: UNK
  21. INDOMETHACIN. [Concomitant]
     Active Substance: INDOMETHACIN
     Dosage: UNK
  22. OXYCODON [Concomitant]
     Active Substance: OXYCODONE
     Dosage: UNK
  23. ENBREL [Suspect]
     Active Substance: ETANERCEPT
     Indication: RHEUMATOID ARTHRITIS
     Dosage: 25 MG, 2 TIMES/WK
     Route: 065
     Dates: start: 20000615, end: 20130901
  24. METHYLPREDNISOLONE. [Concomitant]
     Active Substance: METHYLPREDNISOLONE
     Dosage: 4 MG, UNK
  25. ENBREL [Suspect]
     Active Substance: ETANERCEPT
     Dosage: 25 MG, 2 TIMES/WK
  26. CYCLOPENTOLATE. [Concomitant]
     Active Substance: CYCLOPENTOLATE
     Dosage: UNK

REACTIONS (55)
  - Wrong technique in product usage process [Unknown]
  - Clostridium difficile colitis [Unknown]
  - Nephrolithiasis [Unknown]
  - Drug ineffective [Unknown]
  - Fatigue [Unknown]
  - Vertigo [Unknown]
  - Abdominal discomfort [Unknown]
  - Herpes virus infection [Unknown]
  - Irritable bowel syndrome [Unknown]
  - Gait inability [Unknown]
  - Arthralgia [Not Recovered/Not Resolved]
  - Oropharyngeal plaque [Unknown]
  - Blood urine present [Unknown]
  - Sleep deficit [Unknown]
  - Road traffic accident [Unknown]
  - Product storage error [Not Recovered/Not Resolved]
  - Vitreous injury [Unknown]
  - Eye pain [Unknown]
  - Libido decreased [Unknown]
  - Epistaxis [Unknown]
  - Cough [Unknown]
  - Iritis [Not Recovered/Not Resolved]
  - Reiter^s syndrome [Unknown]
  - Pain [Not Recovered/Not Resolved]
  - Head injury [Unknown]
  - Insomnia [Unknown]
  - Abdominal distension [Unknown]
  - Dyspnoea [Unknown]
  - Mental impairment [Not Recovered/Not Resolved]
  - Joint swelling [Not Recovered/Not Resolved]
  - Vision blurred [Unknown]
  - Bladder pain [Unknown]
  - Lethargy [Unknown]
  - Dysstasia [Unknown]
  - Tissue injury [Unknown]
  - Paraesthesia [Unknown]
  - Throat irritation [Unknown]
  - Dental plaque [Unknown]
  - Anxiety [Unknown]
  - Dyspnoea [Not Recovered/Not Resolved]
  - Rheumatoid arthritis [Recovering/Resolving]
  - Rectal haemorrhage [Unknown]
  - Swelling [Not Recovered/Not Resolved]
  - Flatulence [Unknown]
  - Urine output decreased [Unknown]
  - Pain in extremity [Not Recovered/Not Resolved]
  - Headache [Unknown]
  - Oral disorder [Unknown]
  - Haemoptysis [Unknown]
  - Pyrexia [Unknown]
  - Anger [Unknown]
  - Poor quality drug administered [Unknown]
  - Pain [Unknown]
  - Gout [Unknown]
  - Fear [Not Recovered/Not Resolved]

NARRATIVE: CASE EVENT DATE: 2000
